FAERS Safety Report 6092994-6 (Version None)
Quarter: 2009Q1

REPORT INFORMATION
  Report Type: 
  Country: None (occurrence: None)
  Receive Date: 20090224
  Receipt Date: 20090220
  Transmission Date: 20090719
  Serious: Yes (Other)
  Sender: FDA-Public Use
  Company Number: 2009000380

PATIENT
  Age: 65 Year
  Sex: Male

DRUGS (4)
  1. TARCEVA [Suspect]
     Indication: LUNG NEOPLASM MALIGNANT
     Dosage: ORAL
     Route: 048
  2. CISPLATIN [Suspect]
     Indication: LUNG ADENOCARCINOMA
     Dosage: INTRAVENOUS
     Route: 042
  3. ETOPOSIDE [Suspect]
     Indication: LUNG ADENOCARCINOMA
  4. FLUOROURACIL [Suspect]

REACTIONS (1)
  - PALMAR-PLANTAR ERYTHRODYSAESTHESIA SYNDROME [None]
